FAERS Safety Report 5048571-9 (Version None)
Quarter: 2006Q3

REPORT INFORMATION
  Report Type: 
  Country: None (occurrence: None)
  Receive Date: 20060705
  Receipt Date: 20060622
  Transmission Date: 20061208
  Serious: Yes (Death)
  Sender: FDA-Public Use
  Company Number: WAES 0605USA03854

PATIENT
  Age: 46 Year
  Sex: Female

DRUGS (16)
  1. CANCIDAS [Suspect]
     Indication: BRONCHOPULMONARY ASPERGILLOSIS
     Dosage: 50 MG/DAILY IV
     Route: 042
     Dates: start: 20060511, end: 20060516
  2. INJ ACETAMINOPHEN [Suspect]
     Dosage: 1 GM/1X IV
     Route: 042
     Dates: start: 20060427, end: 20060427
  3. INJ ACETAMINOPHEN [Suspect]
     Dosage: 1 GM/1X IV
     Route: 042
     Dates: start: 20060508, end: 20060508
  4. INJ ACETAMINOPHEN [Suspect]
     Dosage: 1 GM/1X IV
     Route: 042
     Dates: start: 20060510, end: 20060510
  5. INJ ACETAMINOPHEN [Suspect]
     Dosage: 1 GM/1X IV
     Route: 042
     Dates: start: 20060511, end: 20060511
  6. INJ ACETAMINOPHEN [Suspect]
     Dosage: 1 GM/1X IV
     Route: 042
     Dates: start: 20060512, end: 20060512
  7. INJ ACETAMINOPHEN [Suspect]
     Dosage: 1 GM/1X IV
     Route: 042
     Dates: start: 20060514, end: 20060514
  8. INJ ACETAMINOPHEN [Suspect]
     Dosage: 1 GM/1X IV
     Route: 042
     Dates: start: 20060515, end: 20060515
  9. INJ ACETAMINOPHEN [Suspect]
     Dosage: 1 GM/1X IV
     Route: 042
     Dates: start: 20060516, end: 20060516
  10. ACETAMINOPHEN [Suspect]
     Dosage: 500 MG/1X PO; 1 GM/1X PO; 1 GM/1X PO; 1 GM1X PO
     Route: 048
     Dates: start: 20060430, end: 20060430
  11. ACETAMINOPHEN [Suspect]
     Dosage: 500 MG/1X PO; 1 GM/1X PO; 1 GM/1X PO; 1 GM1X PO
     Route: 048
     Dates: start: 20060501, end: 20060501
  12. ACETAMINOPHEN [Suspect]
     Dosage: 500 MG/1X PO; 1 GM/1X PO; 1 GM/1X PO; 1 GM1X PO
     Route: 048
     Dates: start: 20060502, end: 20060502
  13. ACETAMINOPHEN [Suspect]
     Dosage: 500 MG/1X PO; 1 GM/1X PO; 1 GM/1X PO; 1 GM1X PO
     Route: 048
     Dates: start: 20060503, end: 20060503
  14. AMIKACIN [Concomitant]
  15. CYTARABINE [Concomitant]
  16. PIPERACILLIN SODIUM (+) TAZOBACTAM SODIU [Concomitant]

REACTIONS (5)
  - CONDITION AGGRAVATED [None]
  - HEPATIC FAILURE [None]
  - HEPATIC NECROSIS [None]
  - HYPOTENSION [None]
  - SEPTIC SHOCK [None]
